FAERS Safety Report 13507209 (Version 1)
Quarter: 2017Q2

REPORT INFORMATION
  Report Type: Spontaneous
  Country: US (occurrence: US)
  Receive Date: 20170503
  Receipt Date: 20170503
  Transmission Date: 20170830
  Serious: No
  Sender: FDA-Public Use
  Company Number: US-TEVA-734053ACC

PATIENT
  Age: 63 Year
  Sex: Male

DRUGS (1)
  1. HYDROCODONE/IBUPROFEN [Suspect]
     Active Substance: HYDROCODONE\IBUPROFEN
     Dosage: DOSE STRENGTH: 7.5/200MG
     Dates: start: 20161216

REACTIONS (2)
  - Heart rate increased [Unknown]
  - Agitation [Unknown]

NARRATIVE: CASE EVENT DATE: 20161216
